FAERS Safety Report 9325011 (Version 3)
Quarter: 2013Q3

REPORT INFORMATION
  Report Type: Report from Study
  Country: US (occurrence: US)
  Receive Date: 20130603
  Receipt Date: 20130722
  Transmission Date: 20140515
  Serious: Yes (Other)
  Sender: FDA-Public Use
  Company Number: US-ABBOTT-13P-163-1096514-00

PATIENT
  Age: 45 Year
  Sex: Female

DRUGS (27)
  1. LUPRON DEPOT [Suspect]
     Indication: ENDOMETRIOSIS
     Dosage: 3.75 / MONTH
     Route: 030
     Dates: start: 2003
  2. LUPRON DEPOT [Suspect]
     Dates: start: 20130531
  3. ABILIFY [Suspect]
     Indication: PRODUCT USED FOR UNKNOWN INDICATION
  4. ABILIFY [Suspect]
  5. MORPHINE [Suspect]
     Indication: MYALGIA
     Dates: start: 2002, end: 2008
  6. PROTONIX [Concomitant]
     Indication: PRODUCT USED FOR UNKNOWN INDICATION
  7. MS-CONTIN [Concomitant]
     Indication: MYALGIA
     Dosage: TWICE DAILY, AS NEEDED
  8. OXYCODONE [Concomitant]
     Indication: MYALGIA
     Dosage: UP TO THREE TIMES A DAY, AS NEEDED
  9. BACLOFEN [Concomitant]
     Indication: PRODUCT USED FOR UNKNOWN INDICATION
     Dosage: 3 TIMES A DAY, AS NEEDED
  10. VITAMIN D [Concomitant]
     Indication: PRODUCT USED FOR UNKNOWN INDICATION
  11. SYNTHROID [Concomitant]
     Indication: HYPOTHYROIDISM
  12. LEXAPRO [Concomitant]
     Indication: PRODUCT USED FOR UNKNOWN INDICATION
  13. NITROGLYCERINE [Concomitant]
     Indication: MUSCULOSKELETAL CHEST PAIN
     Dosage: UP TO THREE DOSES A DAY, AS NEEDED
  14. NITROGLYCERINE [Concomitant]
     Indication: MIGRAINE
  15. SINGULAIR [Concomitant]
     Indication: PRODUCT USED FOR UNKNOWN INDICATION
  16. ALBUTEROL PROAIR HFA [Concomitant]
     Indication: PRODUCT USED FOR UNKNOWN INDICATION
     Dosage: 1 TO 2 PUFFS EVERY SIX HOURS AS NEEDED
  17. VALIUM [Concomitant]
     Indication: PRODUCT USED FOR UNKNOWN INDICATION
     Dosage: UP TO THREE TIMES A DAY, EVERY EIGHT HOURS, AS NEEDED
  18. IBUPROFEN [Concomitant]
     Indication: PRODUCT USED FOR UNKNOWN INDICATION
     Dosage: UP TO THREE TIMES A DAY, AS NEEDED
  19. ONGLYZA [Concomitant]
     Indication: DIABETES MELLITUS
  20. APIDRA INSULIN PUMP [Concomitant]
     Indication: PRODUCT USED FOR UNKNOWN INDICATION
  21. CO Q10 [Concomitant]
     Indication: PRODUCT USED FOR UNKNOWN INDICATION
  22. STOOL SOFTENER [Concomitant]
     Indication: PRODUCT USED FOR UNKNOWN INDICATION
  23. COMPAZINE [Concomitant]
     Indication: NAUSEA
     Dosage: FOUR TIMES DAILY, AS NEEDED
  24. IMITREX [Concomitant]
     Indication: MIGRAINE
     Dosage: AS NEEDED, UP TO 2 SHOTS A DAY
  25. LYRICA [Concomitant]
     Indication: PRODUCT USED FOR UNKNOWN INDICATION
  26. ZYRTEC [Concomitant]
     Indication: PRODUCT USED FOR UNKNOWN INDICATION
  27. ABILIFY [Concomitant]
     Indication: PRODUCT USED FOR UNKNOWN INDICATION

REACTIONS (16)
  - Mitochondrial myopathy [Not Recovered/Not Resolved]
  - Road traffic accident [Recovered/Resolved]
  - Limb crushing injury [Unknown]
  - Cholecystectomy [Recovered/Resolved]
  - Hepatic cirrhosis [Unknown]
  - Drug effect delayed [Recovered/Resolved]
  - Post lumbar puncture syndrome [Unknown]
  - Endometriosis [Unknown]
  - Back pain [Unknown]
  - Adnexa uteri pain [Unknown]
  - Uterine pain [Unknown]
  - Abdominal pain upper [Unknown]
  - Bipolar disorder [Unknown]
  - Somnolence [Unknown]
  - Activities of daily living impaired [Unknown]
  - Hepatic pain [Not Recovered/Not Resolved]
